FAERS Safety Report 5458545-1 (Version None)
Quarter: 2007Q3

REPORT INFORMATION
  Report Type: 
  Country: None (occurrence: None)
  Receive Date: 20070919
  Receipt Date: 20070910
  Transmission Date: 20080115
  Serious: Yes (Hospitalization, Other)
  Sender: FDA-Public Use
  Company Number: US-AMGEN-STX242663

PATIENT
  Sex: Female

DRUGS (1)
  1. ENBREL [Suspect]
     Indication: RHEUMATOID ARTHRITIS
     Route: 058
     Dates: start: 19990901

REACTIONS (4)
  - BLINDNESS TRANSIENT [None]
  - BLOOD POTASSIUM ABNORMAL [None]
  - CARDIAC DISORDER [None]
  - HAND REPAIR OPERATION [None]
